FAERS Safety Report 6056712-X (Version None)
Quarter: 2009Q1

REPORT INFORMATION
  Report Type: 
  Country: None (occurrence: None)
  Receive Date: 20090126
  Receipt Date: 20090126
  Transmission Date: 20090719
  Serious: Yes (Hospitalization)
  Sender: FDA-Public Use
  Company Number: None

PATIENT
  Sex: Female
  Weight: 95.45 kg

DRUGS (2)
  1. CARBOPLATIN [Suspect]
     Dosage: 443 MG
  2. TAXOL [Suspect]
     Dosage: 347 MG

REACTIONS (3)
  - CHILLS [None]
  - FEBRILE NEUTROPENIA [None]
  - HAEMOGLOBIN DECREASED [None]
